FAERS Safety Report 4267607-6 (Version None)
Quarter: 2004Q1

REPORT INFORMATION
  Report Type: 
  Country: None (occurrence: None)
  Receive Date: 20040109
  Receipt Date: 20031007
  Transmission Date: 20041129
  Serious: No
  Sender: FDA-Public Use
  Company Number: US-GLAXOSMITHKLINE-A0429237A

PATIENT
  Sex: Male

DRUGS (1)
  1. WELLBUTRIN [Suspect]

REACTIONS (1)
  - UNEXPECTED THERAPEUTIC DRUG EFFECT [None]
